FAERS Safety Report 5732076-3 (Version None)
Quarter: 2008Q2

REPORT INFORMATION
  Report Type: 
  Country: None (occurrence: None)
  Receive Date: 20080506
  Receipt Date: 20080429
  Transmission Date: 20081010
  Serious: Yes (Death, Hospitalization)
  Sender: FDA-Public Use
  Company Number: DE-JNJFOC-20070304694

PATIENT
  Age: 76 Year
  Sex: 0
  Weight: 95 kg

DRUGS (6)
  1. DECITABINE (DECITABINE) LYOPHILIZED POWDER [Suspect]
     Indication: DRUG USE FOR UNKNOWN INDICATION
     Dosage: 297 MG,INTRAVENOUS
     Route: 042
     Dates: start: 20060926, end: 20070130
  2. COTRIM (BACTRIM) UNSPECIFIED [Concomitant]
  3. ALLUPURINOL (ALLOPURINOL) UNSPECIFIED [Concomitant]
  4. HEXORAL (HEXETIDINE) UNSPECIFIED [Concomitant]
  5. AMPHOMORONAL (AMPHOTERICIN B) UNSPECIFIED [Concomitant]
  6. TAVANIC (LEVOFLOXACIN) UNSPECIFIED [Concomitant]

REACTIONS (8)
  - BLOOD CALCIUM DECREASED [None]
  - C-REACTIVE PROTEIN INCREASED [None]
  - HAEMATOCRIT DECREASED [None]
  - HAEMOGLOBIN DECREASED [None]
  - INTERNATIONAL NORMALISED RATIO DECREASED [None]
  - PLATELET COUNT DECREASED [None]
  - URINARY BLADDER HAEMORRHAGE [None]
  - WHITE BLOOD CELL COUNT DECREASED [None]
